FAERS Safety Report 6937392-5 (Version None)
Quarter: 2010Q3

REPORT INFORMATION
  Report Type: 
  Country: None (occurrence: None)
  Receive Date: 20100823
  Receipt Date: 20100812
  Transmission Date: 20110219
  Serious: Yes (Death, Hospitalization)
  Sender: FDA-Public Use
  Company Number: JP-SANOFI-AVENTIS-2010SA049002

PATIENT
  Age: 75 Year
  Sex: Male
  Weight: 58 kg

DRUGS (12)
  1. CLOPIDOGREL BISULFATE [Suspect]
     Indication: PRODUCT USED FOR UNKNOWN INDICATION
     Route: 048
     Dates: start: 20100208, end: 20100208
  2. CLOPIDOGREL BISULFATE [Suspect]
     Route: 048
     Dates: start: 20100209, end: 20100522
  3. INVESTIGATIONAL DRUG [Suspect]
     Indication: PRODUCT USED FOR UNKNOWN INDICATION
     Route: 048
     Dates: start: 20100212, end: 20100510
  4. IOPAMIDOL [Suspect]
     Route: 065
     Dates: start: 20100208, end: 20100208
  5. PERINDOPRIL [Concomitant]
     Indication: PRODUCT USED FOR UNKNOWN INDICATION
     Route: 065
     Dates: start: 20100212, end: 20100522
  6. ASPIRIN [Concomitant]
     Indication: PRODUCT USED FOR UNKNOWN INDICATION
     Route: 065
     Dates: start: 20100208, end: 20100208
  7. ASPIRIN [Concomitant]
     Route: 065
     Dates: start: 20100209, end: 20100522
  8. ASPIRIN [Concomitant]
     Route: 065
     Dates: end: 20100207
  9. ATORVASTATIN [Concomitant]
     Indication: PRODUCT USED FOR UNKNOWN INDICATION
     Route: 065
     Dates: end: 20100522
  10. INSULIN [Concomitant]
     Indication: PRODUCT USED FOR UNKNOWN INDICATION
     Route: 065
  11. H2-RECEPTOR ANTAGONISTS [Concomitant]
     Indication: PRODUCT USED FOR UNKNOWN INDICATION
     Route: 065
     Dates: start: 20100209, end: 20100522
  12. MAGNESIUM OXIDE [Concomitant]
     Indication: PRODUCT USED FOR UNKNOWN INDICATION
     Route: 065
     Dates: end: 20100522

REACTIONS (5)
  - CEREBELLAR HAEMORRHAGE [None]
  - HAEMATEMESIS [None]
  - OEDEMA [None]
  - RENAL FAILURE [None]
  - VERTIGO [None]
